FAERS Safety Report 15015046 (Version 1)
Quarter: 2018Q2

REPORT INFORMATION
  Report Type: Spontaneous
  Country: ZA (occurrence: ZA)
  Receive Date: 20180615
  Receipt Date: 20180615
  Transmission Date: 20180711
  Serious: Yes (Hospitalization, Other)
  Sender: FDA-Public Use
  Company Number: ZA-LUPIN PHARMACEUTICALS INC.-2018-04391

PATIENT
  Sex: Female

DRUGS (5)
  1. AMLOC TABLETS (AMLODIPINE BESYLATE) [Suspect]
     Active Substance: AMLODIPINE BESYLATE
     Indication: HYPERTENSION
     Dosage: 5 MG, UNK
     Route: 048
  2. AMILORETIC                         /00206601/ [Suspect]
     Active Substance: AMILORIDE HYDROCHLORIDE\HYDROCHLOROTHIAZIDE
     Indication: POLYURIA
     Dosage: 5/50MG, UNK
     Route: 048
  3. PANTOPRAZOLE [Suspect]
     Active Substance: PANTOPRAZOLE
     Indication: ULCER
     Dosage: 40 MG, UNK
     Route: 048
  4. TREPILINE                          /00002201/ [Suspect]
     Active Substance: AMITRIPTYLINE
     Indication: STRESS
     Dosage: 25 MG, UNK
     Route: 048
  5. AROPAX [Suspect]
     Active Substance: PAROXETINE HYDROCHLORIDE
     Indication: DEPRESSION
     Dosage: 25 MG, UNK
     Route: 048

REACTIONS (1)
  - Seizure [Unknown]
